FAERS Safety Report 15682480 (Version 1)
Quarter: 2018Q4

REPORT INFORMATION
  Report Type: Report from Study
  Country: FR (occurrence: FR)
  Receive Date: 20181203
  Receipt Date: 20181203
  Transmission Date: 20190205
  Serious: Yes (Death)
  Sender: FDA-Public Use
  Company Number: FR-MYLANLABS-2018M1089329

PATIENT
  Age: 64 Year

DRUGS (2)
  1. BENDAMUSTINE HYDROCHLORIDE. [Suspect]
     Active Substance: BENDAMUSTINE HYDROCHLORIDE
     Indication: LYMPHOMA
     Dosage: INDUCTION PHASE: TWO COURSES FROM DAYS 1 TO 2 AND DAYS 29 TO 30
     Route: 065
  2. RITUXIMAB. [Suspect]
     Active Substance: RITUXIMAB
     Indication: LYMPHOMA
     Dosage: INDUCTION PHASE, AND FOLLOWING COMPLETION OF THE INDUCTION PHASE, MAINTENANCE PHASE WITH IV RITUX...
     Route: 042

REACTIONS (1)
  - Adenocarcinoma [Fatal]
